FAERS Safety Report 7893232-1 (Version None)
Quarter: 2011Q4

REPORT INFORMATION
  Report Type: 
  Country: None (occurrence: None)
  Receive Date: 20111104
  Receipt Date: 20111101
  Transmission Date: 20120403
  Serious: Yes (Disabling)
  Sender: FDA-Public Use
  Company Number: PHEH2011US05719

PATIENT
  Sex: Female
  Weight: 63.039 kg

DRUGS (2)
  1. VITAMIN D [Concomitant]
     Dosage: 2000 IU, QD
     Route: 048
  2. LAMISIL [Suspect]
     Indication: ONYCHOMYCOSIS
     Route: 048
     Dates: start: 20110801, end: 20110901

REACTIONS (7)
  - PRURITUS [None]
  - WEIGHT DECREASED [None]
  - DRY EYE [None]
  - RASH [None]
  - DRY MOUTH [None]
  - CONSTIPATION [None]
  - AGEUSIA [None]
